FAERS Safety Report 10154239 (Version 1)
Quarter: 2014Q2

REPORT INFORMATION
  Report Type: Spontaneous
  Country: US (occurrence: US)
  Receive Date: 20140506
  Receipt Date: 20140506
  Transmission Date: 20141212
  Serious: No
  Sender: FDA-Public Use
  Company Number: US-PFIZER INC-2014119822

PATIENT
  Age: 64 Year
  Sex: Female
  Weight: 81.63 kg

DRUGS (3)
  1. PHENYTOIN SODIUM [Suspect]
     Indication: EPILEPSY
     Dosage: 100 MG, 3X/DAY
  2. PHENYTOIN SODIUM [Suspect]
     Indication: CONVULSION
  3. PHENOBARBITAL SODIUM [Concomitant]
     Dosage: 32.5 MG, 4X/DAY

REACTIONS (1)
  - Drug ineffective [Unknown]
